FAERS Safety Report 12072533 (Version 4)
Quarter: 2016Q1

REPORT INFORMATION
  Report Type: Spontaneous
  Country: SE (occurrence: SE)
  Receive Date: 20160212
  Receipt Date: 20160311
  Transmission Date: 20160526
  Serious: Yes (Other)
  Sender: FDA-Public Use
  Company Number: SE-ACTAVIS-2016-02516

PATIENT
  Age: 75 Year
  Sex: Female

DRUGS (6)
  1. CANDESARTAN [Concomitant]
     Active Substance: CANDESARTAN
     Indication: PRODUCT USED FOR UNKNOWN INDICATION
     Dosage: UNK UNK, UNKNOWN
     Route: 065
  2. TROMBYL [Concomitant]
     Active Substance: ASPIRIN
     Indication: PRODUCT USED FOR UNKNOWN INDICATION
     Dosage: UNK UNK, UNKNOWN
     Route: 065
  3. LEVAXIN [Concomitant]
     Active Substance: LEVOTHYROXINE SODIUM
     Indication: PRODUCT USED FOR UNKNOWN INDICATION
     Dosage: UNK UNK, UNKNOWN
     Route: 065
  4. ATORVASTATIN RANBAXY [Suspect]
     Active Substance: ATORVASTATIN
     Indication: PRODUCT USED FOR UNKNOWN INDICATION
     Dosage: UNK, UNKNOWN
     Route: 065
     Dates: start: 20151104, end: 20160107
  5. LAMOTRIGIN ACTAVIS [Suspect]
     Active Substance: LAMOTRIGINE
     Dosage: 100 MG, DAILY
     Route: 065
     Dates: start: 20151121, end: 20160102
  6. LAMOTRIGIN ACTAVIS [Suspect]
     Active Substance: LAMOTRIGINE
     Indication: EPILEPSY
     Dosage: 50 MG, DAILY
     Route: 065
     Dates: start: 20160121, end: 20160201

REACTIONS (9)
  - Nausea [Recovered/Resolved]
  - Back pain [Recovered/Resolved]
  - Balance disorder [Recovered/Resolved]
  - Confusional state [Recovered/Resolved]
  - Gait disturbance [Recovered/Resolved]
  - Blood pressure fluctuation [Unknown]
  - Malaise [Recovered/Resolved]
  - Alopecia [Recovered/Resolved]
  - Shoulder deformity [Recovered/Resolved]

NARRATIVE: CASE EVENT DATE: 20151121
